FAERS Safety Report 5701961-0 (Version None)
Quarter: 2008Q2

REPORT INFORMATION
  Report Type: 
  Country: None (occurrence: None)
  Receive Date: 20080411
  Receipt Date: 20071003
  Transmission Date: 20081010
  Serious: No
  Sender: FDA-Public Use
  Company Number: US-ABBOTT-05P-163-0311558-00

PATIENT
  Sex: Female
  Weight: 65.83 kg

DRUGS (2)
  1. DEPAKOTE [Suspect]
     Indication: MYOCLONIC EPILEPSY
     Route: 048
     Dates: start: 19940101
  2. DEPAKOTE [Suspect]
     Route: 048
     Dates: start: 19960101

REACTIONS (9)
  - ALOPECIA [None]
  - DIARRHOEA [None]
  - FLATULENCE [None]
  - INSOMNIA [None]
  - NEURITIS [None]
  - PAIN [None]
  - POLYCYSTIC OVARIES [None]
  - TREMOR [None]
  - WEIGHT INCREASED [None]
